FAERS Safety Report 5018458-6 (Version None)
Quarter: 2006Q2

REPORT INFORMATION
  Report Type: 
  Country: None (occurrence: None)
  Receive Date: 20060530
  Receipt Date: 20050406
  Transmission Date: 20061013
  Serious: Yes (Other)
  Sender: FDA-Public Use
  Company Number: 2005056257

PATIENT
  Age: 48 Year
  Sex: Male
  Weight: 95 kg

DRUGS (5)
  1. LYRICA [Suspect]
     Indication: NEURALGIA
     Dosage: 75 MG, ORAL
     Route: 048
  2. FLUOXETINE [Concomitant]
  3. PHENYTOIN [Concomitant]
  4. ATENOLOL [Concomitant]
  5. BENDROFLUMETHIAZIDE (BENDROFLUMETHIAZIDE) [Concomitant]

REACTIONS (3)
  - MUSCLE CONTRACTIONS INVOLUNTARY [None]
  - SPEECH DISORDER [None]
  - THIRST [None]
